FAERS Safety Report 8774411 (Version 1)
Quarter: 2012Q4

REPORT INFORMATION
  Report Type: 
  Country: US (occurrence: US)
  Receive Date: 20120907
  Receipt Date: 20120907
  Transmission Date: 20130627
  Serious: Yes (Disabling)
  Sender: FDA-Public Use
  Company Number: US-FRI-1000038289

PATIENT
  Sex: Female
  Weight: 70.31 kg

DRUGS (6)
  1. SAVELLA [Suspect]
     Indication: FIBROMYALGIA
  2. SAVELLA [Suspect]
  3. LYRICA [Suspect]
     Indication: FIBROMYALGIA
  4. LYRICA [Suspect]
  5. TOPROL XL [Concomitant]
     Indication: SUPRAVENTRICULAR TACHYCARDIA
  6. ESTRADIOL [Concomitant]
     Indication: HYSTERECTOMY

REACTIONS (6)
  - Road traffic accident [Unknown]
  - Palpitations [Recovering/Resolving]
  - Neck pain [Not Recovered/Not Resolved]
  - Neck injury [Not Recovered/Not Resolved]
  - Musculoskeletal pain [Not Recovered/Not Resolved]
  - Pain in extremity [Not Recovered/Not Resolved]
